FAERS Safety Report 19888513 (Version 1)
Quarter: 2021Q3

REPORT INFORMATION
  Report Type: Spontaneous
  Country: US (occurrence: US)
  Receive Date: 20210927
  Receipt Date: 20210927
  Transmission Date: 20211014
  Serious: No
  Sender: FDA-Public Use
  Company Number: US-KVK-TECH, INC-20210100014

PATIENT
  Age: 64 Year
  Sex: Female
  Weight: 47.62 kg

DRUGS (3)
  1. OXYCODONE HYDROCHLORIDE TABLETS, USP [Suspect]
     Active Substance: OXYCODONE HYDROCHLORIDE
     Indication: NEURALGIA
     Dosage: 10 MILLIGRAM, BID
     Route: 048
     Dates: start: 20201217
  2. METIPRANOLOL. [Concomitant]
     Active Substance: METIPRANOLOL
     Indication: DYSPEPSIA
     Dosage: UNK
  3. METIPRANOLOL. [Concomitant]
     Active Substance: METIPRANOLOL
     Indication: DYSPEPSIA

REACTIONS (10)
  - Nervousness [Unknown]
  - Product coating issue [Unknown]
  - Fluid retention [Unknown]
  - Rash [Unknown]
  - Product quality issue [Unknown]
  - Peripheral swelling [Unknown]
  - Hypersensitivity [Unknown]
  - Disorientation [Unknown]
  - Nausea [Unknown]
  - Oedema peripheral [Unknown]
